FAERS Safety Report 20624901 (Version 1)
Quarter: 2022Q1

REPORT INFORMATION
  Report Type: Spontaneous
  Country: IR (occurrence: IR)
  Receive Date: 20220323
  Receipt Date: 20220323
  Transmission Date: 20220423
  Serious: Yes (Life-Threatening, Hospitalization, Other)
  Sender: FDA-Public Use
  Company Number: IR-SUN PHARMACEUTICAL INDUSTRIES LTD-2022RR-330198

PATIENT
  Age: 2 Year
  Sex: Male
  Weight: 10 kg

DRUGS (1)
  1. DONEPEZIL [Suspect]
     Active Substance: DONEPEZIL
     Indication: Accidental exposure to product
     Dosage: 10 MG TABLETS, ONE PILL
     Route: 048

REACTIONS (3)
  - Cholinergic syndrome [Recovered/Resolved]
  - Toxicity to various agents [Unknown]
  - Accidental exposure to product by child [Unknown]
